FAERS Safety Report 9493187 (Version 1)
Quarter: 2013Q3

REPORT INFORMATION
  Report Type: Spontaneous
  Country: GB (occurrence: GB)
  Receive Date: 20130902
  Receipt Date: 20130902
  Transmission Date: 20140515
  Serious: Yes (Disabling, Other)
  Sender: FDA-Public Use
  Company Number: GB-BRISTOL-MYERS SQUIBB COMPANY-19200823

PATIENT
  Age: 58 Year
  Sex: Male
  Weight: 90 kg

DRUGS (4)
  1. BYDUREON [Suspect]
     Indication: DIABETES MELLITUS
     Route: 058
     Dates: start: 20130308, end: 20130708
  2. METFORMIN [Concomitant]
     Indication: DIABETES MELLITUS
     Route: 048
  3. PERINDOPRIL [Concomitant]
     Indication: HYPERTENSION
     Route: 048
  4. SILDENAFIL [Concomitant]
     Indication: ERECTILE DYSFUNCTION
     Route: 048

REACTIONS (3)
  - Liver injury [Recovered/Resolved]
  - Musculoskeletal pain [Recovered/Resolved]
  - Alanine aminotransferase increased [Recovered/Resolved]
